FAERS Safety Report 8126575-7 (Version None)
Quarter: 2012Q1

REPORT INFORMATION
  Report Type: 
  Country: None (occurrence: None)
  Receive Date: 20120210
  Receipt Date: 20120202
  Transmission Date: 20120608
  Serious: Yes (Other)
  Sender: FDA-Public Use
  Company Number: FI-BIOGENIDEC-2011BI041244

PATIENT
  Age: 54 Year
  Sex: Female

DRUGS (2)
  1. COZAAR [Concomitant]
     Indication: HYPERTENSION
     Route: 048
  2. TYSABRI [Suspect]
     Indication: MULTIPLE SCLEROSIS
     Route: 042
     Dates: start: 20110224, end: 20110907

REACTIONS (1)
  - BREAST CANCER IN SITU [None]
